FAERS Safety Report 25548581 (Version 1)
Quarter: 2025Q3

REPORT INFORMATION
  Report Type: Spontaneous
  Country: US (occurrence: None)
  Receive Date: 20250712
  Receipt Date: 20250712
  Transmission Date: 20251020
  Serious: Yes (Disabling)
  Sender: FDA-CTU
  Company Number: None

PATIENT
  Age: 40 Year
  Sex: Female
  Weight: 63 kg

DRUGS (1)
  1. LEVOFLOXACIN [Suspect]
     Active Substance: LEVOFLOXACIN
     Indication: Urinary tract infection
     Dosage: OTHER QUANTITY : 6 CAPSULE(S);?FREQUENCY : EVERY 12 HOURS;?
     Route: 048
     Dates: start: 20240628, end: 20240629

REACTIONS (19)
  - Paraesthesia [None]
  - Paraesthesia [None]
  - Panic attack [None]
  - Tremor [None]
  - Palpitations [None]
  - Headache [None]
  - Abdominal pain upper [None]
  - Bladder pain [None]
  - Tendon pain [None]
  - Arthralgia [None]
  - Joint noise [None]
  - Urticaria [None]
  - Rash [None]
  - Renal pain [None]
  - Nervous system disorder [None]
  - Myalgia [None]
  - White blood cell count decreased [None]
  - Vitamin D decreased [None]
  - Gilbert^s syndrome [None]

NARRATIVE: CASE EVENT DATE: 20250628
